FAERS Safety Report 10032833 (Version 2)
Quarter: 2014Q2

REPORT INFORMATION
  Report Type: Spontaneous
  Country: US (occurrence: US)
  Receive Date: 20140324
  Receipt Date: 20140425
  Transmission Date: 20141212
  Serious: No
  Sender: FDA-Public Use
  Company Number: US-PFIZER INC-2014083450

PATIENT
  Age: 64 Year
  Sex: Female
  Weight: 77.1 kg

DRUGS (2)
  1. EFFEXOR XR [Suspect]
     Indication: MAJOR DEPRESSION
     Dosage: 150 MG, DAILY
  2. EFFEXOR XR [Suspect]
     Dosage: 300 MG, DAILY

REACTIONS (1)
  - Nasopharyngitis [Unknown]
